FAERS Safety Report 7034006-3 (Version None)
Quarter: 2010Q4

REPORT INFORMATION
  Report Type: 
  Country: None (occurrence: None)
  Receive Date: 20101007
  Receipt Date: 20101001
  Transmission Date: 20110411
  Serious: Yes (Death, Other)
  Sender: FDA-Public Use
  Company Number: PHHY2010GB65971

PATIENT
  Sex: Male

DRUGS (2)
  1. STALEVO 100 [Suspect]
  2. ANAESTHETICS [Suspect]
     Dosage: UNK

REACTIONS (2)
  - ANAESTHETIC COMPLICATION [None]
  - TOOTH DISORDER [None]
